FAERS Safety Report 7567974-1 (Version None)
Quarter: 2011Q2

REPORT INFORMATION
  Report Type: 
  Country: None (occurrence: None)
  Receive Date: 20110623
  Receipt Date: 20110613
  Transmission Date: 20111010
  Serious: Yes (Other)
  Sender: FDA-Public Use
  Company Number: GB-GENZYME-CLOF-1001489

PATIENT
  Sex: Male

DRUGS (2)
  1. EVOLTRA [Suspect]
     Indication: MYELODYSPLASTIC SYNDROME
     Dosage: 20 MG/M2, QD
     Route: 042
     Dates: start: 20110126, end: 20110128
  2. EVOLTRA [Suspect]
     Dosage: 20 MG/M2, QDX5; DAY 1-3 ON 26-28 JAN, DAY 4 ON 31JAN AND DAY 5 ON 01 FEB
     Route: 042
     Dates: start: 20110131, end: 20110201

REACTIONS (1)
  - THROMBOCYTOPENIA [None]
